FAERS Safety Report 12949412 (Version 2)
Quarter: 2016Q4

REPORT INFORMATION
  Report Type: Spontaneous
  Country: US (occurrence: US)
  Receive Date: 20161117
  Receipt Date: 20161227
  Transmission Date: 20170207
  Serious: No
  Sender: FDA-Public Use
  Company Number: US-PFIZER INC-2016529266

PATIENT
  Age: 66 Year
  Sex: Male

DRUGS (2)
  1. DOCETAXEL. [Suspect]
     Active Substance: DOCETAXEL
     Indication: MALIGNANT FIBROUS HISTIOCYTOMA METASTATIC
     Dosage: CYCLIC (X3 CYCLES), 3 CYCLES (1 IN 1 CYCLICAL)
  2. GEMCITABINE HYDROCHLORIDE. [Suspect]
     Active Substance: GEMCITABINE HYDROCHLORIDE
     Indication: MALIGNANT FIBROUS HISTIOCYTOMA METASTATIC
     Dosage: CYCLIC (X3 CYCLES), 3 CYCLES (1 IN 1 CYCLICAL)

REACTIONS (2)
  - Neoplasm progression [Unknown]
  - Oedema peripheral [Unknown]
